FAERS Safety Report 4652975-3 (Version None)
Quarter: 2005Q2

REPORT INFORMATION
  Report Type: 
  Country: None (occurrence: None)
  Receive Date: 20050503
  Receipt Date: 20050421
  Transmission Date: 20051028
  Serious: Yes (Life-Threatening, Hospitalization, Disabling)
  Sender: FDA-Public Use
  Company Number: 2003-01-4044

PATIENT
  Age: 35 Year
  Sex: Male
  Weight: 90.7194 kg

DRUGS (12)
  1. PEG-INTRON [Suspect]
     Indication: HEPATITIS C
     Dosage: 150 MCG QWK SUBCUTANEOUS
     Route: 058
     Dates: start: 20021218
  2. REBETOL [Suspect]
     Indication: HEPATITIS C
     Dosage: 1000 MG QD ORAL
     Route: 048
     Dates: start: 20021218
  3. XANAX [Suspect]
     Dates: start: 20030101, end: 20030101
  4. COMPAZINE [Concomitant]
  5. ELAVIL [Concomitant]
  6. KLONOPIN [Concomitant]
  7. PAXIL [Concomitant]
  8. PHENERGAN [Concomitant]
  9. PROTONIX [Concomitant]
  10. OXYCONTIN [Concomitant]
  11. MORPHINE [Concomitant]
  12. PERCOCET [Concomitant]

REACTIONS (14)
  - ABDOMINAL PAIN [None]
  - ARM AMPUTATION [None]
  - BACK PAIN [None]
  - CRUSH INJURY [None]
  - DEHYDRATION [None]
  - DIABETES MELLITUS [None]
  - GAS GANGRENE [None]
  - LOSS OF CONSCIOUSNESS [None]
  - NERVE INJURY [None]
  - OVERDOSE [None]
  - PANCREATITIS [None]
  - POSTOPERATIVE INFECTION [None]
  - PYREXIA [None]
  - THROMBOPHLEBITIS [None]
